FAERS Safety Report 6708633-4 (Version None)
Quarter: 2010Q2

REPORT INFORMATION
  Report Type: 
  Country: None (occurrence: None)
  Receive Date: 20100503
  Receipt Date: 20100421
  Transmission Date: 20101027
  Serious: Yes (Other)
  Sender: FDA-Public Use
  Company Number: US-ELI_LILLY_AND_COMPANY-US201004008003

PATIENT

DRUGS (1)
  1. CYMBALTA [Suspect]
     Dosage: 1 D/F, UNK

REACTIONS (3)
  - ADVERSE EVENT [None]
  - DRUG EXPOSURE DURING PREGNANCY [None]
  - PREMATURE BABY [None]
